FAERS Safety Report 9505918 (Version 1)
Quarter: 2013Q1

REPORT INFORMATION
  Report Type: Spontaneous
  Country: US (occurrence: None)
  Receive Date: 20130213
  Receipt Date: 20130213
  Transmission Date: 20140127
  Serious: Yes (Other)
  Sender: FDA-Public Use
  Company Number: 2012SCPR004332

PATIENT
  Age: 55 Year
  Sex: Female

DRUGS (34)
  1. FLUOXETINE [Suspect]
     Indication: DEPRESSION
  2. IBUPROFEN (IBUPROFEN) [Suspect]
     Indication: PRODUCT USED FOR UNKNOWN INDICATION
  3. ZOLPIDEM TARTRATE ER [Suspect]
     Indication: PRODUCT USED FOR UNKNOWN INDICATION
  4. TRAMADOL (TRAMADOL HYDROCHLORIDE) [Suspect]
     Indication: PRODUCT USED FOR UNKNOWN INDICATION
  5. ACETAMINOPHEN W/HYDROCODONE (HYDROCODONE, PARACETAMOL) [Concomitant]
  6. NEXIUM (ESOMEPRAZOLE MAGNESIUM) [Concomitant]
  7. LIPITOR (ATORVASTATIN CALCIUM) [Concomitant]
  8. ALTACE (RAMIPRIL) [Concomitant]
  9. SINGULAIR [Concomitant]
  10. XOPENEX (LEVOSALBUTAMOL HYDROCHLORIDE) [Concomitant]
  11. ADVAIR (FLUTICASONE PROPIONATE, SALMETEROL XINAFOATE) [Concomitant]
  12. CLARITIN (GLICLAZIDE) [Concomitant]
  13. CLARITIN-D (LORATADINE, PSEUDOEPHEDRINE SULFATE) [Concomitant]
  14. BACLOFEN (BACLOFEN) [Concomitant]
  15. HYDROCHLOROTHIAZIDE (HYDROCHLOROTHIAZIDE) [Concomitant]
  16. HYDROXYZINE PAMOATE (HYDROXYZINE EMBONATE) [Concomitant]
  17. CORTICOSTEROIDS [Concomitant]
  18. DOC-Q-LACE (DOCUSATE SODIUM) [Concomitant]
  19. MIRALAX [Concomitant]
  20. VITAMIN A (RETINOL) [Concomitant]
  21. VITAMIN B COMPLEX (VITAMIN B COMPLEX) [Concomitant]
  22. VITAMIN C [Concomitant]
  23. VITAMIN D (ERGOCALCIFEROL) [Concomitant]
  24. VITAMIN E (TOCOPHEROL) [Concomitant]
  25. ZINC (ZINC) [Concomitant]
  26. L-ARGININE (ARGININE) [Concomitant]
  27. L-CARNITINE (LEVOCARNITINE) [Concomitant]
  28. MAGNESIUM (MAGNESIUM) [Concomitant]
  29. DHEA (PRASTERONE) [Concomitant]
  30. VERAMYST (FLUTICASONE FUROATE) [Concomitant]
  31. PENICILLIN (BENZYLPENICILLIN) [Concomitant]
  32. LANTUS (INSULIN GLARGINE) [Concomitant]
  33. GLIPIZIDE (GLIPIZIDE) [Concomitant]
  34. GLUCOPHAGE (METFORMIN HYDROCHLODIE) [Concomitant]

REACTIONS (3)
  - Depression [None]
  - Drug ineffective [None]
  - Product quality issue [None]
